FAERS Safety Report 23624041 (Version 1)
Quarter: 2024Q1

REPORT INFORMATION
  Report Type: Spontaneous
  Country: US (occurrence: US)
  Receive Date: 20240312
  Receipt Date: 20240312
  Transmission Date: 20240410
  Serious: Yes (Hospitalization)
  Sender: FDA-Public Use
  Company Number: US-PFIZER INC-PV202400033597

PATIENT
  Age: 45 Year
  Sex: Female

DRUGS (1)
  1. XELJANZ [Suspect]
     Active Substance: TOFACITINIB CITRATE
     Indication: Rheumatoid arthritis
     Dosage: 5 MG, 2X/DAY
     Route: 048
     Dates: start: 202312, end: 20240229

REACTIONS (6)
  - Bronchitis [Recovering/Resolving]
  - Product dose omission issue [Unknown]
  - Urinary tract infection [Not Recovered/Not Resolved]
  - Fall [Unknown]
  - Gait inability [Unknown]
  - Illness [Unknown]

NARRATIVE: CASE EVENT DATE: 20240101
